FAERS Safety Report 10355480 (Version 2)
Quarter: 2014Q4

REPORT INFORMATION
  Report Type: Spontaneous
  Country: US (occurrence: None)
  Receive Date: 20140728
  Receipt Date: 20141113
  Transmission Date: 20150528
  Serious: No
  Sender: FDA-Public Use
  Company Number: 2014-US-008959

PATIENT
  Age: 71 Year
  Sex: Female

DRUGS (1)
  1. XYREM [Suspect]
     Active Substance: SODIUM OXYBATE
     Indication: INSOMNIA
     Route: 048
     Dates: start: 200511, end: 2005

REACTIONS (5)
  - Off label use [None]
  - Aortic bypass [None]
  - Carotid endarterectomy [None]
  - Femur fracture [None]
  - Abdominal hernia [None]
